FAERS Safety Report 15796149 (Version 1)
Quarter: 2019Q1

REPORT INFORMATION
  Report Type: Report from Study
  Country: US (occurrence: US)
  Receive Date: 20190108
  Receipt Date: 20190108
  Transmission Date: 20190417
  Serious: No
  Sender: FDA-Public Use
  Company Number: PHEH2019US000550

PATIENT
  Sex: Male

DRUGS (1)
  1. COSENTYX [Suspect]
     Active Substance: SECUKINUMAB
     Indication: PSORIASIS
     Route: 058

REACTIONS (6)
  - Psoriasis [Not Recovered/Not Resolved]
  - Paternal exposure timing unspecified [Unknown]
  - Dermatitis [Not Recovered/Not Resolved]
  - Skin lesion [Not Recovered/Not Resolved]
  - Skin fissures [Not Recovered/Not Resolved]
  - Drug ineffective [Unknown]
